FAERS Safety Report 8799481 (Version 1)
Quarter: 2012Q4

REPORT INFORMATION
  Report Type: 
  Country: US (occurrence: US)
  Receive Date: 20120919
  Receipt Date: 20120919
  Transmission Date: 20130627
  Serious: No
  Sender: FDA-Public Use
  Company Number: US-PFIZER INC-2012230063

PATIENT
  Age: 48 Year
  Sex: Female

DRUGS (7)
  1. EFFEXOR [Suspect]
     Dosage: UNK
  2. TRAZODONE HCL [Suspect]
     Dosage: UNK
  3. PAXIL [Suspect]
     Dosage: UNK
  4. CELEXA [Suspect]
     Dosage: UNK
  5. LEXAPRO [Suspect]
     Dosage: UNK
  6. PROZAC [Suspect]
     Dosage: UNK
  7. WELLBUTRIN [Suspect]
     Dosage: UNK

REACTIONS (2)
  - Drug ineffective [Unknown]
  - Adverse drug reaction [None]
